FAERS Safety Report 23178918 (Version 4)
Quarter: 2023Q4

REPORT INFORMATION
  Report Type: Report from Study
  Country: US (occurrence: US)
  Receive Date: 20231113
  Receipt Date: 20231211
  Transmission Date: 20240110
  Serious: Yes (Hospitalization, Other)
  Sender: FDA-Public Use
  Company Number: US-ALXN-202311USA000454US

PATIENT
  Sex: Male

DRUGS (1)
  1. STRENSIQ [Suspect]
     Active Substance: ASFOTASE ALFA
     Indication: Hypophosphatasia
     Dosage: 59 MILLIGRAM PER MILLILITRE, SIX TIMES/WEEK
     Route: 065
     Dates: start: 20231102

REACTIONS (6)
  - Femur fracture [Unknown]
  - Fracture [Not Recovered/Not Resolved]
  - Fatigue [Unknown]
  - Impaired healing [Unknown]
  - Injection site mass [Unknown]
  - Injection site pain [Unknown]
